FAERS Safety Report 24084164 (Version 1)
Quarter: 2024Q3

REPORT INFORMATION
  Report Type: Report from Study
  Country: CA (occurrence: CA)
  Receive Date: 20240712
  Receipt Date: 20240712
  Transmission Date: 20241016
  Serious: Yes (Other)
  Sender: PIERRE FABRE MEDICAMENT
  Company Number: CA-PFM-2022-03424

PATIENT

DRUGS (1)
  1. PROPRANOLOL HYDROCHLORIDE [Suspect]
     Active Substance: PROPRANOLOL HYDROCHLORIDE
     Indication: Infantile haemangioma
     Dosage: UNK
     Route: 048

REACTIONS (11)
  - Pneumonia [Unknown]
  - Hypoglycaemia [Unknown]
  - Seizure [Unknown]
  - Gastrointestinal disorder [Unknown]
  - Adverse event [Unknown]
  - Bradycardia [Unknown]
  - Hypotension [Unknown]
  - Sleep disorder [Unknown]
  - Peripheral coldness [Unknown]
  - Product administered to patient of inappropriate age [Unknown]
  - Off label use [Unknown]
